FAERS Safety Report 6994264-8 (Version None)
Quarter: 2010Q3

REPORT INFORMATION
  Report Type: 
  Country: None (occurrence: None)
  Receive Date: 20100917
  Receipt Date: 20080324
  Transmission Date: 20110219
  Serious: Yes (Hospitalization, Other)
  Sender: FDA-Public Use
  Company Number: US-ASTRAZENECA-2007UW12849

PATIENT
  Age: 421 Month
  Sex: Male

DRUGS (5)
  1. SEROQUEL [Suspect]
     Indication: SLEEP DISORDER
     Route: 048
     Dates: start: 20030701, end: 20031001
  2. SEROQUEL [Suspect]
     Dosage: 25 MG EVERY NIGHT AS REQUIRED, 100MG EVERY NIGHT
     Route: 048
     Dates: start: 20030701
  3. EFFEXOR XR [Concomitant]
     Dates: start: 20030101
  4. WELLBUTRIN [Concomitant]
     Dates: start: 20040101
  5. PROVENTIL [Concomitant]
     Dates: start: 20040101

REACTIONS (2)
  - ABDOMINAL PAIN [None]
  - PANCREATITIS ACUTE [None]
